FAERS Safety Report 8956793 (Version 1)
Quarter: 2012Q4

REPORT INFORMATION
  Report Type: Report from Study
  Country: MX (occurrence: MX)
  Receive Date: 20121210
  Receipt Date: 20121210
  Transmission Date: 20130627
  Serious: Yes (Hospitalization)
  Sender: FDA-Public Use
  Company Number: MX-ROCHE-1128636

PATIENT
  Age: 65 Year
  Sex: Male

DRUGS (16)
  1. ALEGLITAZAR [Suspect]
     Indication: CARDIOVASCULAR EVENT PROPHYLAXIS
     Dosage: Last dose prior to SAE 10/aug/2012
     Route: 048
     Dates: start: 20120223
  2. RANITIDINE [Concomitant]
     Route: 048
     Dates: start: 20120223, end: 20120816
  3. ASPIRIN [Concomitant]
     Route: 048
     Dates: start: 20120223
  4. CLOPIDOGREL [Concomitant]
     Route: 048
     Dates: start: 20120223
  5. ATORVASTATIN [Concomitant]
     Route: 048
     Dates: start: 20120223, end: 20120327
  6. ATORVASTATIN [Concomitant]
     Route: 048
     Dates: start: 20120327
  7. LOSARTAN [Concomitant]
     Route: 048
     Dates: start: 20120223, end: 20120913
  8. LOSARTAN [Concomitant]
     Route: 048
     Dates: start: 20120913
  9. ISOSORBIDE [Concomitant]
     Route: 048
     Dates: start: 20120223
  10. SENOSIDOS [Concomitant]
     Route: 048
     Dates: start: 20120223, end: 20120301
  11. INSULIN NPH [Concomitant]
     Route: 058
     Dates: start: 20120223, end: 20120327
  12. INSULIN NPH [Concomitant]
     Route: 058
     Dates: start: 20120327, end: 20120816
  13. INSULIN NPH [Concomitant]
     Route: 058
     Dates: start: 20120217, end: 20120327
  14. INSULIN NPH [Concomitant]
     Route: 058
     Dates: start: 20120327, end: 20120816
  15. METFORMIN [Concomitant]
     Route: 048
     Dates: start: 199902, end: 20120212
  16. METFORMIN [Concomitant]
     Route: 048
     Dates: start: 20120213

REACTIONS (1)
  - Pyrexia [Recovered/Resolved]
